FAERS Safety Report 26006062 (Version 1)
Quarter: 2025Q4

REPORT INFORMATION
  Report Type: Spontaneous
  Country: CA (occurrence: CA)
  Receive Date: 20251106
  Receipt Date: 20251106
  Transmission Date: 20260117
  Serious: Yes (Other)
  Sender: NORDIC PHARMA
  Company Number: CA-NORDICGR-064580

PATIENT
  Age: 4 Year
  Sex: Female
  Weight: 16 kg

DRUGS (4)
  1. METHOTREXATE SODIUM [Suspect]
     Active Substance: METHOTREXATE SODIUM
     Indication: Uveitis
     Route: 058
  2. ADALIMUMAB [Concomitant]
     Active Substance: ADALIMUMAB
     Indication: Uveitis
     Route: 058
  3. ADALIMUMAB [Concomitant]
     Active Substance: ADALIMUMAB
     Indication: Uveitis
     Route: 058
  4. PREDNISONE [Concomitant]
     Active Substance: PREDNISONE
     Indication: Product used for unknown indication
     Route: 048

REACTIONS (20)
  - Blindness unilateral [Unknown]
  - Eye swelling [Unknown]
  - Middle insomnia [Unknown]
  - Photosensitivity reaction [Unknown]
  - Photophobia [Unknown]
  - Irritability [Unknown]
  - Product use issue [Unknown]
  - Pollakiuria [Unknown]
  - Condition aggravated [Unknown]
  - Post procedural complication [Unknown]
  - Product use in unapproved indication [Unknown]
  - Back pain [Unknown]
  - Tonsillitis [Unknown]
  - Posturing [Unknown]
  - Fatigue [Unknown]
  - Cataract [Unknown]
  - Adenoiditis [Unknown]
  - Intraocular pressure increased [Unknown]
  - Illness [Unknown]
  - Screaming [Unknown]
